FAERS Safety Report 10090301 (Version 3)
Quarter: 2014Q2

REPORT INFORMATION
  Report Type: Spontaneous
  Country: CN (occurrence: CN)
  Receive Date: 20140421
  Receipt Date: 20140530
  Transmission Date: 20141212
  Serious: No
  Sender: FDA-Public Use
  Company Number: CN-JNJFOC-20140409194

PATIENT
  Age: 53 Year
  Sex: Male

DRUGS (1)
  1. DUROGESIC D-TRANS [Suspect]
     Indication: PAIN
     Dosage: 1.5 PATCHES, ONCE THREE DAYS
     Route: 062
     Dates: start: 20140401

REACTIONS (1)
  - Wrong technique in drug usage process [Unknown]
